FAERS Safety Report 6305143-3 (Version None)
Quarter: 2009Q3

REPORT INFORMATION
  Report Type: 
  Country: None (occurrence: None)
  Receive Date: 20090811
  Receipt Date: 20090731
  Transmission Date: 20100115
  Serious: Yes (Hospitalization, Disabling, Other)
  Sender: FDA-Public Use
  Company Number: PT-GENENTECH-287893

PATIENT
  Age: 71 Year
  Sex: Male

DRUGS (6)
  1. AVASTIN [Suspect]
     Indication: DIABETIC RETINOPATHY
     Dosage: 1.25 MG, UNK
     Route: 031
     Dates: start: 20090717, end: 20090717
  2. LEVOFLOXACIN [Concomitant]
     Indication: DRUG USE FOR UNKNOWN INDICATION
     Dosage: UNK
     Dates: start: 20090714
  3. GLIBENCLAMIDE [Concomitant]
     Indication: DRUG USE FOR UNKNOWN INDICATION
     Dosage: UNK
  4. POVIDONE IODINE [Concomitant]
     Indication: DRUG USE FOR UNKNOWN INDICATION
     Dosage: UNK
     Dates: start: 20090717, end: 20090717
  5. NORFLOXACIN [Concomitant]
     Indication: DRUG USE FOR UNKNOWN INDICATION
     Dosage: UNK
     Dates: start: 20090717, end: 20090717
  6. OXYBUPROCAINE HCL [Concomitant]
     Indication: DRUG USE FOR UNKNOWN INDICATION
     Dosage: UNK
     Dates: start: 20090717, end: 20090717

REACTIONS (2)
  - BLINDNESS UNILATERAL [None]
  - ENDOPHTHALMITIS [None]
